FAERS Safety Report 6109272-9 (Version None)
Quarter: 2009Q1

REPORT INFORMATION
  Report Type: 
  Country: None (occurrence: None)
  Receive Date: 20090309
  Receipt Date: 20090309
  Transmission Date: 20090719
  Serious: Yes (Hospitalization)
  Sender: FDA-Public Use
  Company Number: None

PATIENT
  Sex: Female
  Weight: 110.55 kg

DRUGS (2)
  1. CARBOPLATIN [Suspect]
     Dosage: 1884 MG
  2. TAXOL [Suspect]
     Dosage: 1050 MG

REACTIONS (4)
  - BLADDER DISORDER [None]
  - DEEP VEIN THROMBOSIS [None]
  - HYDRONEPHROSIS [None]
  - LOCALISED INTRAABDOMINAL FLUID COLLECTION [None]
